FAERS Safety Report 7105473-1 (Version None)
Quarter: 2010Q4

REPORT INFORMATION
  Report Type: 
  Country: None (occurrence: None)
  Receive Date: 20101110
  Receipt Date: 20101014
  Transmission Date: 20110411
  Serious: Yes (Other)
  Sender: FDA-Public Use
  Company Number: US-1183586

PATIENT
  Sex: Female
  Weight: 70.3075 kg

DRUGS (4)
  1. TIMOLOL MALEATE [Suspect]
     Indication: GLAUCOMA
     Dosage: (1 GTT QD OU OPHTHALMIC)
     Route: 047
     Dates: start: 20100904, end: 20100904
  2. TIMOLOL MALEATE [Suspect]
     Indication: GLAUCOMA
     Dosage: (1 GTT QD OU OPHTHALMIC)
     Route: 047
  3. ARMOUR THYROID [Concomitant]
  4. SULAR [Concomitant]

REACTIONS (4)
  - EYE DISCHARGE [None]
  - EYELID IRRITATION [None]
  - STAPHYLOCOCCUS TEST POSITIVE [None]
  - VISION BLURRED [None]
